FAERS Safety Report 18889775 (Version 1)
Quarter: 2021Q1

REPORT INFORMATION
  Report Type: Spontaneous
  Country: US (occurrence: US)
  Receive Date: 20210213
  Receipt Date: 20210213
  Transmission Date: 20210420
  Serious: No
  Sender: FDA-Public Use
  Company Number: US-SA-2021SA045277

PATIENT
  Age: 65 Year
  Sex: Male

DRUGS (1)
  1. DUPIXENT [Suspect]
     Active Substance: DUPILUMAB
     Indication: DERMATITIS ATOPIC
     Dosage: 300 MG, QOW
     Route: 058
     Dates: start: 201809, end: 20210122

REACTIONS (8)
  - Vomiting [Unknown]
  - Dysstasia [Unknown]
  - Hypersomnia [Unknown]
  - Nausea [Unknown]
  - Lethargy [Unknown]
  - COVID-19 [Unknown]
  - Sensitive skin [Unknown]
  - Dizziness [Unknown]
